FAERS Safety Report 23673605 (Version 1)
Quarter: 2024Q1

REPORT INFORMATION
  Report Type: Spontaneous
  Country: JP (occurrence: JP)
  Receive Date: 20240326
  Receipt Date: 20240326
  Transmission Date: 20240409
  Serious: Yes (Other)
  Sender: FDA-Public Use
  Company Number: JP-SA-2024SA086846

PATIENT
  Age: 80 Year
  Sex: Female

DRUGS (1)
  1. ALLEGRA [Suspect]
     Active Substance: FEXOFENADINE HYDROCHLORIDE
     Indication: Product used for unknown indication
     Dosage: 1 TABLET, EVERY EVENING
     Route: 048
     Dates: start: 20240310

REACTIONS (6)
  - Depressed level of consciousness [Unknown]
  - Sedation [Unknown]
  - Pyrexia [Unknown]
  - Blood pressure increased [Unknown]
  - Thirst [Unknown]
  - Underdose [Unknown]

NARRATIVE: CASE EVENT DATE: 20240310
